FAERS Safety Report 6639953-X (Version None)
Quarter: 2010Q1

REPORT INFORMATION
  Report Type: 
  Country: None (occurrence: None)
  Receive Date: 20100318
  Receipt Date: 20100121
  Transmission Date: 20100710
  Serious: Yes (Other)
  Sender: FDA-Public Use
  Company Number: US-BAYER-201015113NA

PATIENT
  Age: 63 Year
  Sex: Male

DRUGS (3)
  1. VARDENAFIL [Suspect]
     Indication: ERECTILE DYSFUNCTION
     Route: 048
     Dates: start: 20090901
  2. EXFORGE [Concomitant]
     Indication: HYPERTENSION
     Route: 048
     Dates: start: 20090320
  3. SINGULAIR [Concomitant]
     Route: 048
     Dates: start: 20091012

REACTIONS (2)
  - EYE PAIN [None]
  - OPTIC ISCHAEMIC NEUROPATHY [None]
